FAERS Safety Report 7677581-8 (Version None)
Quarter: 2011Q3

REPORT INFORMATION
  Report Type: 
  Country: None (occurrence: None)
  Receive Date: 20110811
  Receipt Date: 20110811
  Transmission Date: 20111222
  Serious: Yes (Other)
  Sender: FDA-Public Use
  Company Number: None

PATIENT
  Age: 41 Year
  Sex: Female
  Weight: 62.142 kg

DRUGS (1)
  1. ZOLPIDEM [Suspect]

REACTIONS (3)
  - CONVULSION [None]
  - AMNESIA [None]
  - ABNORMAL BEHAVIOUR [None]
